FAERS Safety Report 5983157-0 (Version None)
Quarter: 2008Q4

REPORT INFORMATION
  Report Type: 
  Country: None (occurrence: None)
  Receive Date: 20081208
  Receipt Date: 20080102
  Transmission Date: 20090506
  Serious: No
  Sender: FDA-Public Use
  Company Number: US-BAYER-200810072BCC

PATIENT
  Age: 70 Year
  Sex: Female
  Weight: 54 kg

DRUGS (1)
  1. ALEVE-D SINUS + COLD [Suspect]
     Indication: SEASONAL ALLERGY
     Route: 048
     Dates: start: 20071201

REACTIONS (2)
  - FEELING JITTERY [None]
  - PALPITATIONS [None]
